FAERS Safety Report 13336017 (Version 1)
Quarter: 2017Q1

REPORT INFORMATION
  Report Type: Spontaneous
  Country: US (occurrence: US)
  Receive Date: 20170315
  Receipt Date: 20170315
  Transmission Date: 20170428
  Serious: Yes (Death, Other)
  Sender: FDA-Public Use
  Company Number: US-CIPLA LTD.-2017US04165

PATIENT

DRUGS (12)
  1. CISPLATIN. [Suspect]
     Active Substance: CISPLATIN
     Indication: OSTEOSARCOMA
     Dosage: UNK, FIRST LINE CHEMOTHERAPY
  2. METHOTREXATE. [Suspect]
     Active Substance: METHOTREXATE
     Indication: OSTEOSARCOMA
     Dosage: UNK, FIRST LINE CHEMOTHERAPY
     Route: 065
  3. DOXORUBICIN [Suspect]
     Active Substance: DOXORUBICIN
     Indication: OSTEOSARCOMA
     Dosage: UNK, FIRST LINE CHEMOTHERPAY
  4. GEMCITABINE [Suspect]
     Active Substance: GEMCITABINE\GEMCITABINE HYDROCHLORIDE
     Indication: OSTEOSARCOMA RECURRENT
     Dosage: UNK
     Route: 065
  5. METFORMIN [Suspect]
     Active Substance: METFORMIN HYDROCHLORIDE
     Indication: OSTEOSARCOMA RECURRENT
     Dosage: UNK
     Route: 065
  6. CRIZOTINIB [Suspect]
     Active Substance: CRIZOTINIB
     Indication: OSTEOSARCOMA RECURRENT
     Dosage: UNK
     Route: 065
  7. PACLITAX NAB [Suspect]
     Active Substance: PACLITAXEL
     Indication: OSTEOSARCOMA RECURRENT
     Dosage: UNK
     Route: 065
  8. CISPLATIN. [Suspect]
     Active Substance: CISPLATIN
     Dosage: UNK
     Route: 065
  9. CELECOXIB. [Suspect]
     Active Substance: CELECOXIB
     Indication: OSTEOSARCOMA RECURRENT
     Dosage: UNK
     Route: 065
  10. DOXORUBICIN [Suspect]
     Active Substance: DOXORUBICIN
     Dosage: UNK
     Route: 065
  11. IFOSFAMIDE. [Suspect]
     Active Substance: IFOSFAMIDE
     Indication: OSTEOSARCOMA RECURRENT
     Dosage: 14 G/M2 FOR 1 CYCLE, UNK
     Route: 065
  12. RAPAMYCIN [Suspect]
     Active Substance: SIROLIMUS
     Indication: OSTEOSARCOMA RECURRENT
     Dosage: UNK
     Route: 065

REACTIONS (3)
  - Pneumothorax [Recovered/Resolved]
  - Disease progression [Fatal]
  - Osteosarcoma recurrent [Unknown]
